FAERS Safety Report 8460791-X (Version None)
Quarter: 2012Q2

REPORT INFORMATION
  Report Type: 
  Country: None (occurrence: None)
  Receive Date: 20120623
  Receipt Date: 20120612
  Transmission Date: 20120825
  Serious: Yes (Other)
  Sender: FDA-Public Use
  Company Number: GB-TEVA-342565ISR

PATIENT
  Sex: Male

DRUGS (6)
  1. MULTI-VITAMINS [Concomitant]
  2. LANSOPRAZOLE [Suspect]
     Indication: GASTRITIS ALCOHOLIC
     Route: 048
  3. ACETAMINOPHEN [Concomitant]
  4. METRONIDAZOLE [Concomitant]
     Indication: DIARRHOEA
  5. VITAMIN B COMPOUND STRONG [Concomitant]
  6. SENNA-MINT WAF [Concomitant]

REACTIONS (1)
  - HYPOMAGNESAEMIA [None]
